FAERS Safety Report 7642129-0 (Version None)
Quarter: 2011Q3

REPORT INFORMATION
  Report Type: 
  Country: None (occurrence: None)
  Receive Date: 20110728
  Receipt Date: 20110718
  Transmission Date: 20111222
  Serious: Yes (Other)
  Sender: FDA-Public Use
  Company Number: IT-PFIZER INC-2011163108

PATIENT
  Age: 61 Year
  Sex: Female

DRUGS (8)
  1. SPIRONOLACTONE [Concomitant]
  2. ENALAPRIL [Concomitant]
  3. DEXAMETHASONE SODIUM PHOSPHATE [Suspect]
     Dosage: 20 MG, 2X/DAY EVERY 28 DAYS
     Route: 048
  4. FUROSEMIDE [Concomitant]
  5. DEXAMETHASONE SODIUM PHOSPHATE [Suspect]
     Dosage: 40 MG ON DAYS 1 TO 4, EVERY 28 DAYS
     Route: 048
  6. THALIDOMIDE [Suspect]
     Dosage: 100 MG, 1X/DAY ON DAYS 1-21
     Route: 048
  7. ATORVASTATIN [Concomitant]
  8. ACETYLSALICYLIC ACID [Concomitant]
     Indication: THROMBOSIS PROPHYLAXIS
     Dosage: 100 MG, 1X/DAY

REACTIONS (7)
  - ACUTE MYOCARDIAL INFARCTION [None]
  - DYSPNOEA EXERTIONAL [None]
  - FATIGUE [None]
  - TOXICITY TO VARIOUS AGENTS [None]
  - COGNITIVE DISORDER [None]
  - FLUID RETENTION [None]
  - CONSTIPATION [None]
